FAERS Safety Report 11552411 (Version 1)
Quarter: 2015Q3

REPORT INFORMATION
  Report Type: Spontaneous
  Country: US (occurrence: None)
  Receive Date: 20150924
  Receipt Date: 20150924
  Transmission Date: 20151125
  Serious: No
  Sender: FDA-Public Use
  Company Number: None

PATIENT
  Age: 66 Year
  Sex: Male
  Weight: 67.13 kg

DRUGS (5)
  1. ZOLOFT [Concomitant]
     Active Substance: SERTRALINE HYDROCHLORIDE
  2. KIRKLAND SENIOR MULTI VITAMIN [Concomitant]
  3. VITAMIN D 1000MG [Concomitant]
  4. SERTRALINE 50 MG [Suspect]
     Active Substance: SERTRALINE HYDROCHLORIDE
     Indication: ANXIETY
     Dosage: 1 PILL
     Route: 048
  5. CRANBERRY 3600 MG [Concomitant]

REACTIONS (3)
  - Restlessness [None]
  - Insomnia [None]
  - Muscle twitching [None]

NARRATIVE: CASE EVENT DATE: 20150914
